FAERS Safety Report 4954957-0 (Version None)
Quarter: 2006Q1

REPORT INFORMATION
  Report Type: 
  Country: None (occurrence: None)
  Receive Date: 20060322
  Receipt Date: 20060310
  Transmission Date: 20060701
  Serious: Yes (Life-Threatening, Hospitalization)
  Sender: FDA-Public Use
  Company Number: 222527

PATIENT
  Age: 64 Year
  Sex: Male
  Weight: 110 kg

DRUGS (10)
  1. AVASTIN [Suspect]
     Indication: RECTAL CANCER
     Dosage: 5 MG/KG, INTRAVENOUS
     Route: 042
     Dates: start: 20060213
  2. OXALIPLATIN (XALIPLATIN) [Suspect]
     Indication: RECTAL CANCER
     Dosage: 85 MG/M2, INTRAVENOUS
     Route: 042
     Dates: start: 20060213
  3. LEUCOVORIN CALCIUM [Suspect]
     Indication: RECTAL CANCER
     Dosage: 400 MG/M2, INTRAVENOUS
     Route: 042
     Dates: start: 20060213
  4. FLUOROURACIL [Suspect]
     Indication: RECTAL CANCER
     Dosage: SEE IMAGE
     Route: 042
     Dates: start: 20060213, end: 20060215
  5. ACETAMINOPHEN [Concomitant]
  6. ZOFRAN [Concomitant]
  7. DECADRON [Concomitant]
  8. COMPAZINE [Concomitant]
  9. ALTACE [Concomitant]
  10. ATENOLOL [Concomitant]

REACTIONS (10)
  - ARRHYTHMIA [None]
  - BUNDLE BRANCH BLOCK RIGHT [None]
  - CARDIAC ARREST [None]
  - DYSARTHRIA [None]
  - ELECTROCARDIOGRAM QT CORRECTED INTERVAL PROLONGED [None]
  - NAUSEA [None]
  - SPEECH DISORDER [None]
  - TREMOR [None]
  - VENTRICULAR DYSFUNCTION [None]
  - VENTRICULAR FIBRILLATION [None]
